FAERS Safety Report 6425579-X (Version None)
Quarter: 2009Q4

REPORT INFORMATION
  Report Type: 
  Country: None (occurrence: None)
  Receive Date: 20091103
  Receipt Date: 20091022
  Transmission Date: 20100525
  Serious: Yes (Hospitalization)
  Sender: FDA-Public Use
  Company Number: US-ELI_LILLY_AND_COMPANY-US200910006716

PATIENT
  Sex: Male

DRUGS (4)
  1. ZYPREXA [Suspect]
     Dosage: 15 MG, UNK
  2. ZYPREXA [Suspect]
     Dosage: 10 MG, UNK
  3. ZYPREXA [Suspect]
     Dosage: 7.5 MG, UNK
  4. LITHIUM [Concomitant]
     Dosage: 1200 MG, UNK

REACTIONS (2)
  - HOSPITALISATION [None]
  - SEDATION [None]
